FAERS Safety Report 5283006-2 (Version None)
Quarter: 2007Q1

REPORT INFORMATION
  Report Type: 
  Country: None (occurrence: None)
  Receive Date: 20070329
  Receipt Date: 20070329
  Transmission Date: 20070707
  Serious: Yes (Hospitalization)
  Sender: FDA-Public Use
  Company Number: None

PATIENT
  Sex: Female
  Weight: 46.2669 kg

DRUGS (2)
  1. TOPOTECAN 3 MG/M2 [Suspect]
     Indication: SMALL CELL LUNG CANCER STAGE UNSPECIFIED
     Dosage: 3MG/M2  D 1,8,15 Q28  IV
     Route: 042
     Dates: start: 20070312
  2. PS-341  1.6MG/M2 [Suspect]
     Indication: SMALL CELL LUNG CANCER STAGE UNSPECIFIED
     Dosage: 1.6MG/M2  D 1,8,15 Q28  IV
     Route: 042
     Dates: start: 20070312

REACTIONS (4)
  - ASTHENIA [None]
  - BALANCE DISORDER [None]
  - DISEASE PROGRESSION [None]
  - PLATELET COUNT DECREASED [None]
